FAERS Safety Report 12468230 (Version 1)
Quarter: 2016Q2

REPORT INFORMATION
  Report Type: Spontaneous
  Country: US (occurrence: None)
  Receive Date: 20160614
  Receipt Date: 20160614
  Transmission Date: 20160815
  Serious: Yes (Hospitalization)
  Sender: FDA-Public Use
  Company Number: None

PATIENT
  Age: 73 Year
  Sex: Male
  Weight: 79.5 kg

DRUGS (1)
  1. TEMOZOLOMIDE. [Suspect]
     Active Substance: TEMOZOLOMIDE
     Dates: end: 20160524

REACTIONS (8)
  - Demyelination [None]
  - Osmotic demyelination syndrome [None]
  - Aggression [None]
  - Confusional state [None]
  - Condition aggravated [None]
  - Asthenia [None]
  - Fall [None]
  - Mobility decreased [None]

NARRATIVE: CASE EVENT DATE: 20160608
